FAERS Safety Report 9988245 (Version 2)
Quarter: 2014Q2

REPORT INFORMATION
  Report Type: Report from Study
  Country: CN (occurrence: CN)
  Receive Date: 20140309
  Receipt Date: 20140403
  Transmission Date: 20141212
  Serious: Yes (Other)
  Sender: FDA-Public Use
  Company Number: CN-ROCHE-1358201

PATIENT
  Sex: 0

DRUGS (5)
  1. CAPECITABINE [Suspect]
     Indication: GASTRIC CANCER
     Route: 065
  2. TRASTUZUMAB [Suspect]
     Indication: GASTRIC CANCER
     Route: 065
  3. CETUXIMAB [Suspect]
     Indication: GASTRIC CANCER
     Route: 065
  4. TS-1 [Suspect]
     Indication: GASTRIC CANCER
     Route: 065
  5. ALBUMIN-BOUND PACLITAXEL [Suspect]
     Indication: GASTRIC CANCER
     Route: 065

REACTIONS (13)
  - Leukopenia [Unknown]
  - Neutropenia [Unknown]
  - Neurotoxicity [Unknown]
  - Diarrhoea [Unknown]
  - Anaemia [Unknown]
  - Nausea [Unknown]
  - Vomiting [Unknown]
  - Fatigue [Unknown]
  - Palmar-plantar erythrodysaesthesia syndrome [Unknown]
  - Decreased appetite [Unknown]
  - Hepatic function abnormal [Unknown]
  - Alopecia [Unknown]
  - Rash [Unknown]
